FAERS Safety Report 7252473-7 (Version None)
Quarter: 2011Q1

REPORT INFORMATION
  Report Type: 
  Country: None (occurrence: None)
  Receive Date: 20110129
  Receipt Date: 20110118
  Transmission Date: 20110831
  Serious: Yes (Death, Other)
  Sender: FDA-Public Use
  Company Number: US-AMGEN-USASP2011000768

PATIENT
  Age: 54 Year
  Sex: Male
  Weight: 167.35 kg

DRUGS (5)
  1. PRAVASTATIN                        /00880402/ [Concomitant]
     Indication: PRODUCT USED FOR UNKNOWN INDICATION
  2. NPLATE [Suspect]
     Indication: THROMBOCYTOPENIA
     Dosage: 3 A?G/KG, QWK
     Dates: start: 20101007, end: 20101216
  3. LEVOTHROID [Concomitant]
     Indication: PRODUCT USED FOR UNKNOWN INDICATION
  4. ACYCLOVIR [Concomitant]
     Indication: PRODUCT USED FOR UNKNOWN INDICATION
     Dosage: UNK
     Dates: start: 20101022, end: 20101103
  5. NEUPOGEN [Concomitant]
     Indication: PRODUCT USED FOR UNKNOWN INDICATION

REACTIONS (4)
  - DISSEMINATED INTRAVASCULAR COAGULATION [None]
  - THERAPEUTIC RESPONSE DECREASED [None]
  - DYSPNOEA [None]
  - DEATH [None]
